FAERS Safety Report 9155277 (Version 1)
Quarter: 2013Q1

REPORT INFORMATION
  Report Type: Spontaneous
  Country: US (occurrence: US)
  Receive Date: 20130311
  Receipt Date: 20130311
  Transmission Date: 20140127
  Serious: Yes (Life-Threatening, Hospitalization)
  Sender: FDA-Public Use
  Company Number: US-ROCHE-1198597

PATIENT
  Age: 62 Year
  Sex: Male
  Weight: 118.04 kg

DRUGS (16)
  1. PEGASYS [Suspect]
     Indication: PRODUCT USED FOR UNKNOWN INDICATION
     Route: 065
     Dates: start: 20121113
  2. PEGASYS [Suspect]
     Route: 058
     Dates: start: 20130110
  3. RIBAVIRIN [Suspect]
     Indication: PRODUCT USED FOR UNKNOWN INDICATION
     Route: 065
     Dates: start: 20121113
  4. RIBAVIRIN [Suspect]
     Route: 048
     Dates: start: 20130110
  5. INCIVEK [Suspect]
     Indication: PRODUCT USED FOR UNKNOWN INDICATION
     Route: 065
     Dates: start: 20121113
  6. INCIVEK [Suspect]
     Route: 048
     Dates: start: 20130110
  7. LACTULOSE [Concomitant]
     Dosage: 10GM/15ML.
     Route: 065
  8. PROMETHAZINE HCL [Concomitant]
     Route: 065
     Dates: start: 20130227
  9. METFORMIN HCL [Concomitant]
     Route: 065
  10. METHADONE HCL [Concomitant]
     Route: 065
  11. CYMBALTA [Concomitant]
     Route: 065
  12. FUROSEMIDE [Concomitant]
     Route: 065
  13. SYNTHROID [Concomitant]
     Route: 065
  14. ASPIRIN [Concomitant]
     Route: 065
  15. LISINOPRIL [Concomitant]
     Route: 065
  16. K-DUR [Concomitant]
     Route: 065

REACTIONS (8)
  - Pyrexia [Unknown]
  - Confusional state [Unknown]
  - Respiratory distress [Unknown]
  - Pleural effusion [Unknown]
  - Pneumonia [Unknown]
  - Lung infiltration [Unknown]
  - Nausea [Unknown]
  - Vomiting [Unknown]
